FAERS Safety Report 9521728 (Version 1)
Quarter: 2013Q1

REPORT INFORMATION
  Report Type: Spontaneous
  Country: US (occurrence: None)
  Receive Date: 20130305
  Receipt Date: 20130305
  Transmission Date: 20140127
  Serious: Yes (Other)
  Sender: FDA-Public Use
  Company Number: 163-21880-12072838

PATIENT
  Age: 75 Year
  Sex: Male

DRUGS (19)
  1. REVLIMID (LENALIDOMIDE) (CAPSULES) [Suspect]
     Indication: PLASMA CELL MYELOMA
     Dosage: 21 IN 28 D
     Route: 048
     Dates: start: 20120131
  2. VELCADE [Concomitant]
  3. DEXAMETHASONE (DEXAMETHASONE) (UNKNOWN) [Concomitant]
  4. COMPAZINE (PROCHLORPERAZINE EDISYLATE) (TABLESTS) [Concomitant]
  5. ALPRAZOLAM (ALPRAZOLAM) (TABLETS) [Concomitant]
  6. HYDROCODONE/ACETAMINOPHEN (REMEDEINE) (TABLETS) [Concomitant]
  7. ESCITALPRAM (ESCITALPRAM) (TABLETS) [Concomitant]
  8. CALCIUM CARBONATE/VITAMIN D3 (LEKOVIT CA) (UNKNOWN) [Concomitant]
  9. CYANOCOBALAMIN (CYANOCOBALAMIN) (UNKNOWN) [Concomitant]
  10. FENTANYL (FENTANYL) (POULTICE OR PATCH) [Concomitant]
  11. ESOMEPRAZOLE (ESOMEPRAZOLE) (CAPSULES) [Concomitant]
  12. MAGNESIUM (MAGNESIUM) (UNKNOWN) [Concomitant]
  13. SIMVASTATIN [Concomitant]
  14. CYCLOBENZAPRINE (CYCLOBENZAPRINE) (TABLETS) [Concomitant]
  15. ACYCLOVIR (ACICLOVIR) (TABLETS) [Concomitant]
  16. ONDASETRON (ONDASTERON) (TABLETS) [Concomitant]
  17. METFORMIN (METFORMIN) (TABLETS) [Concomitant]
  18. LEVOTHYROXINE (LEVOTHYROXINE) (TABLETS) [Concomitant]
  19. ASPIRIN (ACETYLSALICYLIC ACID) (TABLETS) [Concomitant]

REACTIONS (4)
  - Anaemia [None]
  - Muscle spasms [None]
  - Fatigue [None]
  - Nausea [None]
